FAERS Safety Report 14167428 (Version 1)
Quarter: 2017Q4

REPORT INFORMATION
  Report Type: Spontaneous
  Country: TN (occurrence: TN)
  Receive Date: 20171107
  Receipt Date: 20171107
  Transmission Date: 20180321
  Serious: Yes (Death, Hospitalization, Other)
  Sender: FDA-Public Use
  Company Number: TN-MYLANLABS-2017M1069334

PATIENT
  Age: 37 Year
  Sex: Female

DRUGS (1)
  1. METHOTREXATE. [Suspect]
     Active Substance: METHOTREXATE
     Indication: ECTOPIC PREGNANCY
     Dosage: 25 MG/KG (SINGLE DOSE)
     Route: 030

REACTIONS (21)
  - Erythema [Unknown]
  - Melaena [Unknown]
  - Gastrointestinal haemorrhage [Unknown]
  - Oedema [Unknown]
  - Agitation [Unknown]
  - Toxicity to various agents [Fatal]
  - Skin lesion [Unknown]
  - Haematemesis [Unknown]
  - Septic shock [Fatal]
  - Gingival disorder [Unknown]
  - Bronchial disorder [Unknown]
  - Bone marrow failure [Unknown]
  - Renal failure [Unknown]
  - Vomiting [Unknown]
  - Respiratory failure [Unknown]
  - Exposure during pregnancy [Recovered/Resolved]
  - Rash [Unknown]
  - Red blood cell sedimentation rate increased [Unknown]
  - Hepatocellular injury [Unknown]
  - Disseminated intravascular coagulation [Unknown]
  - Mucosal inflammation [Unknown]
